FAERS Safety Report 21076643 (Version 1)
Quarter: 2022Q3

REPORT INFORMATION
  Report Type: Spontaneous
  Country: US (occurrence: US)
  Receive Date: 20220713
  Receipt Date: 20220713
  Transmission Date: 20221027
  Serious: Yes (Other)
  Sender: FDA-Public Use
  Company Number: US-SA-SAC20220711001214

PATIENT
  Age: 56 Year
  Sex: Female

DRUGS (1)
  1. ZANTAC [Suspect]
     Active Substance: RANITIDINE HYDROCHLORIDE
     Indication: Dyspepsia
     Dosage: UNK, QD
     Dates: start: 200701, end: 201710

REACTIONS (5)
  - Metastatic neoplasm [Unknown]
  - Colorectal cancer stage IV [Unknown]
  - Gastrointestinal carcinoma [Unknown]
  - Ovarian cancer stage IV [Unknown]
  - Appendix cancer [Unknown]

NARRATIVE: CASE EVENT DATE: 20170401
